FAERS Safety Report 5188736-9 (Version None)
Quarter: 2006Q4

REPORT INFORMATION
  Report Type: 
  Country: None (occurrence: None)
  Receive Date: 20061215
  Receipt Date: 20061204
  Transmission Date: 20070319
  Serious: No
  Sender: FDA-Public Use
  Company Number: CLOF-10404

PATIENT
  Age: 9 Year
  Sex: Female
  Weight: 29.2 kg

DRUGS (12)
  1. CLOFARABINE [Suspect]
     Indication: ACUTE LYMPHOCYTIC LEUKAEMIA
     Dosage: 32 MG QD IV
     Route: 042
     Dates: start: 20061129, end: 20061202
  2. ETOPOSIDE [Suspect]
     Indication: ACUTE LYMPHOCYTIC LEUKAEMIA
     Dosage: 106 MG QD IV
     Route: 042
     Dates: start: 20061129, end: 20061202
  3. ACETAMINOPHEN [Concomitant]
  4. ALLOPURINOL SODIUM [Concomitant]
  5. ALUMINUM HYDROXIDE [Concomitant]
  6. AMIKACIN [Concomitant]
  7. CEFEPIME [Concomitant]
  8. DEXAMETHASONE [Concomitant]
  9. DIPHENHYDRAMINE HCL [Concomitant]
  10. LORAZEPAM [Concomitant]
  11. ONDANSETRON [Concomitant]
  12. RANITIDINE [Concomitant]

REACTIONS (3)
  - ANAEMIA [None]
  - PANCREATITIS [None]
  - SPLENOMEGALY [None]
